FAERS Safety Report 6566210-2 (Version None)
Quarter: 2010Q1

REPORT INFORMATION
  Report Type: 
  Country: None (occurrence: None)
  Receive Date: 20100202
  Receipt Date: 20100125
  Transmission Date: 20100710
  Serious: Yes (Other)
  Sender: FDA-Public Use
  Company Number: US-PFIZER INC-2010010936

PATIENT
  Sex: Female

DRUGS (1)
  1. CHANTIX [Suspect]
     Dosage: UNK

REACTIONS (5)
  - LIP SWELLING [None]
  - LOCAL SWELLING [None]
  - OEDEMA MOUTH [None]
  - SKIN EXFOLIATION [None]
  - SWELLING FACE [None]
